FAERS Safety Report 6176062-0 (Version None)
Quarter: 2009Q2

REPORT INFORMATION
  Report Type: 
  Country: None (occurrence: None)
  Receive Date: 20090501
  Receipt Date: 20090421
  Transmission Date: 20091009
  Serious: Yes (Hospitalization)
  Sender: FDA-Public Use
  Company Number: BE-PFIZER INC-2009181462

PATIENT

DRUGS (1)
  1. MARAVIROC [Suspect]

REACTIONS (2)
  - ASTHENIA [None]
  - TUBERCULOSIS [None]
